FAERS Safety Report 9853962 (Version 2)
Quarter: 2014Q1

REPORT INFORMATION
  Report Type: Spontaneous
  Country: US (occurrence: US)
  Receive Date: 20140129
  Receipt Date: 20140129
  Transmission Date: 20141002
  Serious: No
  Sender: FDA-Public Use
  Company Number: US-GILEAD-2013-0082921

PATIENT
  Age: 40 Year
  Sex: Male

DRUGS (1)
  1. ATRIPLA [Suspect]
     Indication: PRODUCT USED FOR UNKNOWN INDICATION
     Dosage: UNK UNKNOWN, UNK

REACTIONS (3)
  - Sensory disturbance [Unknown]
  - Feeling abnormal [Unknown]
  - Abnormal dreams [Unknown]
